FAERS Safety Report 13715997 (Version 4)
Quarter: 2017Q3

REPORT INFORMATION
  Report Type: Spontaneous
  Country: IT (occurrence: IT)
  Receive Date: 20170705
  Receipt Date: 20170814
  Transmission Date: 20171127
  Serious: Yes (Other)
  Sender: FDA-Public Use
  Company Number: IT-ACCORD-049286

PATIENT
  Age: 60 Year
  Sex: Male
  Weight: 59 kg

DRUGS (3)
  1. FLUOROURACIL. [Suspect]
     Active Substance: FLUOROURACIL
     Indication: GASTRIC CANCER
     Dosage: PATIENT RECEIVED 3864 MG INTRAVENOUS DRIP AND 644 MG INTRAVENOUS BOLUS CYCLICAL ON 16-FEB-2017.
     Route: 041
     Dates: start: 20170216
  2. OXALIPLATIN. [Suspect]
     Active Substance: OXALIPLATIN
     Indication: GASTRIC CANCER
     Dosage: PATIENT RECEIVED 136 MG DOSE AND ALSO RECEIVED 102.6 MG DOSE.
     Route: 042
     Dates: start: 20170216
  3. OXALIPLATIN. [Suspect]
     Active Substance: OXALIPLATIN
     Indication: GASTRIC CANCER
     Dosage: PATIENT RECEIVED 136 MG DOSE AND ALSO RECEIVED 102.6 MG DOSE.
     Route: 042
     Dates: start: 20170216

REACTIONS (4)
  - Nausea [Recovered/Resolved]
  - Paraesthesia [Recovered/Resolved]
  - Neutropenia [Recovered/Resolved]
  - Off label use [Unknown]

NARRATIVE: CASE EVENT DATE: 20170220
